FAERS Safety Report 10855082 (Version 1)
Quarter: 2015Q1

REPORT INFORMATION
  Report Type: Spontaneous
  Country: US (occurrence: None)
  Receive Date: 20150218
  Receipt Date: 20150218
  Transmission Date: 20150721
  Serious: Yes (Other)
  Sender: FDA-Public Use
  Company Number: None

PATIENT
  Age: 71 Year
  Sex: Female
  Weight: 68.49 kg

DRUGS (1)
  1. PACLITAXEL. [Suspect]
     Active Substance: PACLITAXEL
     Indication: INTRADUCTAL PROLIFERATIVE BREAST LESION
     Dosage: THREE INFUSIONS INTO A VEIN
     Route: 042

REACTIONS (9)
  - Alopecia [None]
  - Anger [None]
  - Mental disorder [None]
  - Neuropathy peripheral [None]
  - Paraesthesia oral [None]
  - Glossodynia [None]
  - Arthralgia [None]
  - Nausea [None]
  - Stomatitis [None]

NARRATIVE: CASE EVENT DATE: 20140826
